FAERS Safety Report 18381850 (Version 4)
Quarter: 2020Q4

REPORT INFORMATION
  Report Type: Spontaneous
  Country: US (occurrence: US)
  Receive Date: 20201014
  Receipt Date: 20201209
  Transmission Date: 20210114
  Serious: No
  Sender: FDA-Public Use
  Company Number: US-PFIZER INC-2020395504

PATIENT
  Age: 47 Year
  Sex: Male

DRUGS (1)
  1. INLYTA [Suspect]
     Active Substance: AXITINIB
     Dosage: 5 MG
     Dates: start: 20201003

REACTIONS (6)
  - Laryngitis [Unknown]
  - Oropharyngeal pain [Unknown]
  - Pharyngeal ulceration [Unknown]
  - Aphonia [Unknown]
  - Diarrhoea [Unknown]
  - Oropharyngeal discomfort [Unknown]
